FAERS Safety Report 6895057-2 (Version None)
Quarter: 2010Q3

REPORT INFORMATION
  Report Type: 
  Country: None (occurrence: None)
  Receive Date: 20100730
  Receipt Date: 20100730
  Transmission Date: 20110219
  Serious: Yes (Hospitalization)
  Sender: FDA-Public Use
  Company Number: None

PATIENT
  Age: 54 Year
  Sex: Male
  Weight: 103 kg

DRUGS (1)
  1. AMOXICILLIN AND CLAVULANATE POTASSIUM [Suspect]
     Indication: FURUNCLE
     Dosage: 1 TAB BID PO
     Route: 048
     Dates: start: 20100309, end: 20100318

REACTIONS (1)
  - CLOSTRIDIUM DIFFICILE COLITIS [None]
